FAERS Safety Report 23711940 (Version 1)
Quarter: 2024Q2

REPORT INFORMATION
  Report Type: Spontaneous
  Country: US (occurrence: None)
  Receive Date: 20240404
  Receipt Date: 20240404
  Transmission Date: 20240717
  Serious: Yes (Life-Threatening, Hospitalization)
  Sender: FDA-Public Use
  Company Number: None

PATIENT
  Age: 37 Year
  Sex: Female
  Weight: 54.9 kg

DRUGS (2)
  1. FERRIC DERISOMALTOSE [Suspect]
     Active Substance: FERRIC DERISOMALTOSE
     Dosage: 1000 MG ONCE INTRAVENOUS
     Route: 042
     Dates: start: 20240401, end: 20240401
  2. FERRIC DERISOMALTOSE [Concomitant]
     Active Substance: FERRIC DERISOMALTOSE
     Dates: start: 20240401, end: 20240401

REACTIONS (8)
  - Palpitations [None]
  - Chest discomfort [None]
  - Dyspnoea [None]
  - Flushing [None]
  - Infusion related reaction [None]
  - Anaphylactic reaction [None]
  - Nausea [None]
  - Heart rate increased [None]

NARRATIVE: CASE EVENT DATE: 20240401
